FAERS Safety Report 7295423-X (Version None)
Quarter: 2011Q1

REPORT INFORMATION
  Report Type: 
  Country: None (occurrence: None)
  Receive Date: 20110216
  Receipt Date: 20110103
  Transmission Date: 20110831
  Serious: No
  Sender: FDA-Public Use
  Company Number: US-ABBOTT-11P-163-0695309-00

PATIENT
  Sex: Male
  Weight: 91.708 kg

DRUGS (5)
  1. MULTIVITAMIN [Concomitant]
     Indication: PRODUCT USED FOR UNKNOWN INDICATION
  2. ASPIRIN [Concomitant]
     Indication: PROPHYLAXIS
  3. ASPIRIN [Concomitant]
  4. DIOVAN [Concomitant]
     Indication: HYPERTENSION
     Dates: start: 20050101
  5. SIMCOR [Suspect]
     Indication: BLOOD CHOLESTEROL INCREASED
     Dosage: 2 TABLETS EVERY NIGHT
     Dates: start: 20091201

REACTIONS (3)
  - PROSTATIC DISORDER [None]
  - PROSTATIC SPECIFIC ANTIGEN DECREASED [None]
  - FLUSHING [None]
